FAERS Safety Report 18973929 (Version 3)
Quarter: 2021Q1

REPORT INFORMATION
  Report Type: Spontaneous
  Country: GB (occurrence: GB)
  Receive Date: 20210305
  Receipt Date: 20210325
  Transmission Date: 20210420
  Serious: Yes (Other)
  Sender: FDA-Public Use
  Company Number: GB-GLAXOSMITHKLINE-GBCH2021008833

PATIENT
  Age: 54 Year
  Sex: Male
  Weight: 127 kg

DRUGS (7)
  1. IBUPROFEN. [Suspect]
     Active Substance: IBUPROFEN
     Indication: ILL-DEFINED DISORDER
     Dosage: UNK
     Route: 065
     Dates: start: 20210221
  2. RAMIPRIL. [Concomitant]
     Active Substance: RAMIPRIL
     Indication: ILL-DEFINED DISORDER
     Dosage: 1 DF, QD (TAKE ONE DAILY)
     Route: 065
     Dates: start: 20200312
  3. AMOXICILLIN. [Concomitant]
     Active Substance: AMOXICILLIN
     Indication: ILL-DEFINED DISORDER
     Dosage: 1 DF, TID (TAKE ONE CAPSULE THREE TIMES A DAY FOR 7 DAYS ONLY)
     Route: 065
     Dates: start: 20210221
  4. NEBIDO [Concomitant]
     Active Substance: TESTOSTERONE UNDECANOATE
     Indication: ILL-DEFINED DISORDER
     Dosage: UNK (EVERY 12 WEEKS AS DIRECTED BY ENDOCRINE)
     Route: 065
     Dates: start: 20210112
  5. PREDNISOLONE. [Concomitant]
     Active Substance: PREDNISOLONE
     Indication: ILL-DEFINED DISORDER
     Dosage: 40 MG, QD (8 TABLETS (40MG) DAILY FOR 5 DAYS)
     Route: 065
     Dates: start: 20210221
  6. ATORVASTATIN [Concomitant]
     Active Substance: ATORVASTATIN
     Indication: ILL-DEFINED DISORDER
     Dosage: 1 DF, QD (TAKE ONE AT NIGHT)
     Route: 065
     Dates: start: 20200312
  7. AMLODIPINE [Concomitant]
     Active Substance: AMLODIPINE BESYLATE
     Indication: ILL-DEFINED DISORDER
     Dosage: 1 DF, QD (TAKE ONE DAILY)
     Route: 065
     Dates: start: 20200312

REACTIONS (3)
  - Lip swelling [Recovering/Resolving]
  - Angioedema [Recovering/Resolving]
  - Mouth swelling [Recovering/Resolving]

NARRATIVE: CASE EVENT DATE: 20210221
